FAERS Safety Report 15853883 (Version 1)
Quarter: 2019Q1

REPORT INFORMATION
  Report Type: Spontaneous
  Country: US (occurrence: US)
  Receive Date: 20190121
  Receipt Date: 20190121
  Transmission Date: 20190417
  Serious: Yes (Disabling)
  Sender: FDA-Public Use
  Company Number: None

PATIENT
  Age: 70 Year
  Sex: Male
  Weight: 115.2 kg

DRUGS (6)
  1. LEVAQUIN [Suspect]
     Active Substance: LEVOFLOXACIN
  2. CINNAMON. [Concomitant]
     Active Substance: CINNAMON
  3. CIPRO [Suspect]
     Active Substance: CIPROFLOXACIN HYDROCHLORIDE
     Indication: SEPSIS
     Route: 042
     Dates: start: 20181002, end: 20190115
  4. CENTRUM SILVER [Concomitant]
     Active Substance: MINERALS\VITAMINS
  5. CIPRO [Suspect]
     Active Substance: CIPROFLOXACIN HYDROCHLORIDE
     Indication: URINARY TRACT INFECTION
     Route: 042
     Dates: start: 20181002, end: 20190115
  6. COREG [Concomitant]
     Active Substance: CARVEDILOL

REACTIONS (6)
  - Neuropathy peripheral [None]
  - Paraesthesia [None]
  - Walking aid user [None]
  - Tendon pain [None]
  - Musculoskeletal disorder [None]
  - Musculoskeletal stiffness [None]

NARRATIVE: CASE EVENT DATE: 20181002
